FAERS Safety Report 7120146-7 (Version None)
Quarter: 2010Q4

REPORT INFORMATION
  Report Type: 
  Country: None (occurrence: None)
  Receive Date: 20101123
  Receipt Date: 20101105
  Transmission Date: 20110411
  Serious: Yes (Life-Threatening, Hospitalization)
  Sender: FDA-Public Use
  Company Number: JP-AMGEN INC.-QUU439319

PATIENT

DRUGS (18)
  1. ENBREL [Suspect]
     Dosage: 25 MG, QWK
     Route: 058
     Dates: start: 20100522, end: 20100605
  2. ENBREL [Suspect]
     Dosage: 50 MG, QWK
     Route: 058
     Dates: start: 20100612, end: 20100708
  3. ENBREL [Suspect]
     Dosage: 25 MG, 1 TIMES PER 1 WK
     Route: 058
     Dates: start: 20100522, end: 20100605
  4. ENBREL [Suspect]
     Dosage: 50 MG, 1 TIMES PER 1 WK
     Route: 058
     Dates: start: 20100612, end: 20100708
  5. METHOTREXATE SODIUM [Suspect]
     Indication: STILL'S DISEASE ADULT ONSET
     Dosage: 5 MG, 1 TIMES PER 1 WK
     Route: 048
     Dates: start: 20060828, end: 20060904
  6. METHOTREXATE SODIUM [Suspect]
     Dosage: 7.5 MG, 1 TIMES PER 1 WK
     Route: 048
     Dates: start: 20060911
  7. METHOTREXATE SODIUM [Suspect]
     Dosage: 12.5 MG, 1 TIMES PER 1 WK
     Route: 048
     Dates: start: 20060925
  8. METHOTREXATE SODIUM [Suspect]
     Dosage: 15 MG, 1 TIMES PER 1 WK
     Route: 048
     Dates: start: 20061002
  9. METHOTREXATE SODIUM [Suspect]
     Dosage: 20 MG, 1 TIMES PER 1 WK
     Route: 048
     Dates: start: 20070307, end: 20100710
  10. METHOTREXATE SODIUM [Suspect]
     Dosage: 5 MG, 1 TIMES PER 1 WK
     Route: 048
     Dates: start: 20100824
  11. MEDROL [Suspect]
     Indication: STILL'S DISEASE ADULT ONSET
     Dosage: 8 MG, 1X/DAY
     Dates: start: 20100424
  12. ISCOTIN [Suspect]
     Indication: ANTIBIOTIC PROPHYLAXIS
     Dosage: 300 MG, 1X/DAY
     Route: 048
     Dates: start: 20100522, end: 20100801
  13. METHOTREXATE [Concomitant]
     Dosage: 5 MG, QWK
     Route: 048
     Dates: start: 20060701, end: 20070301
  14. METHOTREXATE [Concomitant]
     Dosage: 20 MG, QWK
     Route: 048
     Dates: start: 20070301, end: 20100710
  15. METHOTREXATE [Concomitant]
     Dosage: 5 MG, QWK
     Route: 048
     Dates: start: 20100824
  16. METHOTREXATE [Concomitant]
     Dosage: UNK UNK, UNK
     Route: 048
  17. SOL-MELCORT [Concomitant]
     Dosage: 40 MG, QD
     Route: 042
     Dates: start: 20100424, end: 20100424
  18. SOL-MELCORT [Concomitant]
     Dosage: 40 MG, 1X/DAY
     Route: 042
     Dates: start: 20100424, end: 20100424

REACTIONS (4)
  - CALCULUS URINARY [None]
  - ERYTHEMA MULTIFORME [None]
  - HEPATITIS ACUTE [None]
  - SPINAL FRACTURE [None]
